FAERS Safety Report 24147872 (Version 1)
Quarter: 2024Q3

REPORT INFORMATION
  Report Type: Spontaneous
  Country: US (occurrence: None)
  Receive Date: 20240727
  Receipt Date: 20240727
  Transmission Date: 20241017
  Serious: Yes (Other)
  Sender: Public
  Company Number: None

PATIENT
  Age: 80 Year
  Sex: Female
  Weight: 47.7 kg

DRUGS (1)
  1. GEMTESA [Suspect]
     Active Substance: VIBEGRON
     Indication: Hypertonic bladder
     Dosage: 5 YABLETS DAILY ORAL
     Route: 048
     Dates: start: 20240711, end: 20240715

REACTIONS (3)
  - Intestinal obstruction [None]
  - Constipation [None]
  - Pain [None]

NARRATIVE: CASE EVENT DATE: 20240716
